FAERS Safety Report 25508944 (Version 6)
Quarter: 2025Q4

REPORT INFORMATION
  Report Type: Report from Study
  Country: US (occurrence: US)
  Receive Date: 20250703
  Receipt Date: 20251224
  Transmission Date: 20260117
  Serious: Yes (Hospitalization, Other)
  Sender: ABBVIE
  Company Number: US-ABBVIE-6349809

PATIENT
  Age: 56 Year
  Sex: Male
  Weight: 99.79 kg

DRUGS (2)
  1. RINVOQ [Suspect]
     Active Substance: UPADACITINIB
     Indication: Rheumatoid arthritis
     Dosage: FORM STRENGTH: 15 MG?DISCONTINUED IN 2025
     Route: 048
     Dates: start: 20250628
  2. RINVOQ [Suspect]
     Active Substance: UPADACITINIB
     Indication: Rheumatoid arthritis
     Dosage: FORM STRENGTH: 15 MG
     Route: 048
     Dates: start: 20241101, end: 20250601

REACTIONS (11)
  - Cerebrovascular accident [Recovering/Resolving]
  - Aspartate aminotransferase increased [Unknown]
  - Intracranial pressure increased [Unknown]
  - Carotid artery occlusion [Recovered/Resolved]
  - Thrombosis [Unknown]
  - Cerebral mass effect [Unknown]
  - Alanine aminotransferase increased [Unknown]
  - Hepatic enzyme increased [Recovered/Resolved]
  - Hepatic steatosis [Recovering/Resolving]
  - Heart rate decreased [Unknown]
  - Lower limb fracture [Unknown]

NARRATIVE: CASE EVENT DATE: 20250101
